FAERS Safety Report 21307307 (Version 3)
Quarter: 2022Q4

REPORT INFORMATION
  Report Type: Report from Study
  Country: CA (occurrence: CA)
  Receive Date: 20220908
  Receipt Date: 20221102
  Transmission Date: 20230112
  Serious: Yes (Hospitalization, Other)
  Sender: FDA-Public Use
  Company Number: CA-TAKEDA-2022TUS062044

PATIENT
  Age: 71 Year
  Sex: Female

DRUGS (10)
  1. VEDOLIZUMAB [Suspect]
     Active Substance: VEDOLIZUMAB
     Indication: Colitis ulcerative
     Dosage: 300 MILLIGRAM
     Route: 042
     Dates: start: 20220524
  2. VEDOLIZUMAB [Suspect]
     Active Substance: VEDOLIZUMAB
     Dosage: 300 MILLIGRAM
     Route: 042
     Dates: end: 20220910
  3. ELIQUIS [Concomitant]
     Active Substance: APIXABAN
     Dosage: 10 MILLIGRAM
     Route: 048
  4. OXYBUTYNIN [Concomitant]
     Active Substance: OXYBUTYNIN
     Dosage: 10 MILLIGRAM
     Route: 048
  5. ZOPICLONE [Concomitant]
     Active Substance: ZOPICLONE
     Dosage: 5 MILLIGRAM
     Route: 048
  6. MESALAMINE [Concomitant]
     Active Substance: MESALAMINE
     Dosage: 400 MILLIGRAM
     Route: 048
  7. Salofalk [Concomitant]
     Dosage: UNK
  8. VITAMIN C [Concomitant]
     Active Substance: ASCORBIC ACID
     Dosage: 1000 MILLILITER
     Route: 048
  9. VITAMIN D NOS [Concomitant]
     Active Substance: VITAMIN D NOS
     Dosage: 2000 INTERNATIONAL UNIT
     Route: 048
  10. POLYETHYLENE GLYCOL 3350 [Concomitant]
     Active Substance: POLYETHYLENE GLYCOL 3350
     Dosage: 17 GRAM
     Route: 048

REACTIONS (7)
  - Fistula [Unknown]
  - Urinary tract infection [Unknown]
  - Crohn^s disease [Unknown]
  - Intestinal haemorrhage [Unknown]
  - Fatigue [Unknown]
  - Stomatitis [Unknown]
  - Pyrexia [Unknown]
